FAERS Safety Report 9302343 (Version 2)
Quarter: 2013Q2

REPORT INFORMATION
  Report Type: Spontaneous
  Country: CA (occurrence: None)
  Receive Date: 20130517
  Receipt Date: 20130606
  Transmission Date: 20140414
  Serious: Yes (Life-Threatening, Hospitalization)
  Sender: FDA-Public Use
  Company Number: GER/CAN/13/0029561

PATIENT
  Age: 68 Year
  Sex: Male
  Weight: 80 kg

DRUGS (9)
  1. AMLODIPINE (AMLODIPINE) [Suspect]
     Indication: PRODUCT USED FOR UNKNOWN INDICATION
     Dosage: 300 MG, 1 IN 1 TOTAL, ORAL
     Route: 048
  2. METFORMIN (METFORMIN) [Suspect]
     Indication: PRODUCT USED FOR UNKNOWN INDICATION
     Dosage: 3500 MG, 1 IN 1 TOTAL, ORAL
     Route: 048
  3. ETHANOL [Suspect]
     Indication: PRODUCT USED FOR UNKNOWN INDICATION
     Route: 048
  4. ACEYTLSALICYLIC ACID (ACETYLSALICYLIC ACID) [Concomitant]
  5. CLONAZEPAM (CLONAZEPAM) (CLONAZEPAM) [Concomitant]
  6. GLYBURIDE (GLIBENCLAMIDE) [Concomitant]
  7. IRBESARTAN (IRBESRTAN ) [Concomitant]
  8. TAMSULOSIN (TAMSULOSIN) [Concomitant]
  9. VITAMIN B12 (VITAMIN B12) [Concomitant]

REACTIONS (14)
  - Intentional overdose [None]
  - Suicide attempt [None]
  - Pallor [None]
  - Hyperhidrosis [None]
  - Haemodynamic instability [None]
  - Blood creatinine increased [None]
  - Blood creatine phosphokinase increased [None]
  - Blood sodium decreased [None]
  - Hypotension [None]
  - Shock [None]
  - Metabolic acidosis [None]
  - Hyperglycaemia [None]
  - Oliguria [None]
  - Toxicity to various agents [None]
